FAERS Safety Report 8166891-6 (Version None)
Quarter: 2012Q1

REPORT INFORMATION
  Report Type: 
  Country: None (occurrence: None)
  Receive Date: 20120227
  Receipt Date: 20120213
  Transmission Date: 20120608
  Serious: Yes (Other)
  Sender: FDA-Public Use
  Company Number: US-NOVEN-12US004073

PATIENT
  Sex: Male
  Weight: 72.562 kg

DRUGS (3)
  1. PEXEVA [Suspect]
     Indication: PRODUCT USED FOR UNKNOWN INDICATION
     Dosage: 20 MG, TABLET UNK
     Route: 048
     Dates: start: 20120201
  2. PEXEVA [Suspect]
     Dosage: 20 MG, TABLET UNK
     Route: 048
     Dates: start: 20100101, end: 20120101
  3. WELLBUTRIN [Concomitant]
     Indication: PRODUCT USED FOR UNKNOWN INDICATION

REACTIONS (5)
  - SUICIDAL IDEATION [None]
  - HOMICIDAL IDEATION [None]
  - DRUG WITHDRAWAL SYNDROME [None]
  - ANGER [None]
  - DRUG DOSE OMISSION [None]
